FAERS Safety Report 4478853-0 (Version None)
Quarter: 2004Q4

REPORT INFORMATION
  Report Type: 
  Country: None (occurrence: None)
  Receive Date: 20041013
  Receipt Date: 20040928
  Transmission Date: 20050328
  Serious: Yes (Disabling)
  Sender: FDA-Public Use
  Company Number: 2004SE05381

PATIENT
  Age: 73 Year
  Sex: Male
  Weight: 72 kg

DRUGS (12)
  1. BLOPRESS [Suspect]
     Indication: ESSENTIAL HYPERTENSION
     Dosage: 2 MG QD PO
     Route: 048
     Dates: start: 20040803, end: 20040814
  2. BLOPRESS [Suspect]
     Indication: ESSENTIAL HYPERTENSION
     Dosage: 2 MG QD PO
     Route: 048
     Dates: start: 20040817, end: 20040817
  3. AMLODIPINE BESYLATE [Concomitant]
  4. FUROSEMIDE [Concomitant]
  5. FERROUS CITRATE [Concomitant]
  6. WARFARIN POTASSIUM [Concomitant]
  7. CIMETIDINE [Concomitant]
  8. BROTIZOLAM [Concomitant]
  9. ALLOPURINOL [Concomitant]
  10. DOXAZOSIN MESYLATE [Concomitant]
  11. BENIDIPINE HYDROCHLORIDE [Concomitant]
  12. ISOSORBIDE DINITRATE [Concomitant]

REACTIONS (4)
  - FIBRIN D DIMER INCREASED [None]
  - PLATELET COUNT DECREASED [None]
  - PROTHROMBIN TIME PROLONGED [None]
  - PURPURA [None]
